FAERS Safety Report 19431895 (Version 1)
Quarter: 2021Q2

REPORT INFORMATION
  Report Type: Spontaneous
  Country: PL (occurrence: PL)
  Receive Date: 20210618
  Receipt Date: 20210618
  Transmission Date: 20210717
  Serious: Yes (Other)
  Sender: FDA-Public Use
  Company Number: PL-ROCHE-2849083

PATIENT
  Sex: Female

DRUGS (2)
  1. CAPECITABINE. [Suspect]
     Active Substance: CAPECITABINE
     Indication: BREAST CANCER METASTATIC
     Dosage: ON 07/FEB/2020, SHE RECEIVED MOST RECENT DOSE OF CAPECITABINE
     Route: 065
     Dates: start: 20171015
  2. VINORELBINE [Suspect]
     Active Substance: VINORELBINE TARTRATE
     Indication: BREAST CANCER METASTATIC
     Dosage: ON 07/FEB/2020, SHE RECEIVED MOST RECENT DOSE OF VINORELBINE
     Route: 065
     Dates: start: 20171015

REACTIONS (3)
  - Metastases to kidney [Unknown]
  - Malignant neoplasm progression [Unknown]
  - Breast cancer metastatic [Unknown]
